FAERS Safety Report 23635543 (Version 2)
Quarter: 2024Q2

REPORT INFORMATION
  Report Type: Spontaneous
  Country: US (occurrence: US)
  Receive Date: 20240315
  Receipt Date: 20240507
  Transmission Date: 20240716
  Serious: Yes (Other)
  Sender: FDA-Public Use
  Company Number: US-Vifor (International) Inc.-VIT-2024-02253

PATIENT
  Age: 75 Year
  Sex: Male
  Weight: 85.5 kg

DRUGS (3)
  1. MIRCERA [Suspect]
     Active Substance: METHOXY POLYETHYLENE GLYCOL-EPOETIN BETA
     Indication: Anaemia
     Route: 040
     Dates: start: 20240203, end: 20240217
  2. VENOFER [Suspect]
     Active Substance: IRON SUCROSE
     Indication: Iron deficiency anaemia
     Dosage: EVERY TREATMENT X 10, SUBSEQUENT DOSES ON 06.FEB.2024, 08.FEB.2024, 10.FEB.2024, 13.FEB.2024, 15.FEB
     Route: 040
     Dates: start: 20240203, end: 20240224
  3. CALCITRIOL [Concomitant]
     Active Substance: CALCITRIOL
     Indication: Hyperparathyroidism secondary
     Dosage: EVERY TREATMENT
     Route: 048
     Dates: start: 20240215

REACTIONS (5)
  - Drug hypersensitivity [Recovered/Resolved]
  - Hypotension [Recovered/Resolved]
  - Heart rate decreased [Recovered/Resolved]
  - Vomiting [Recovered/Resolved]
  - Nausea [Recovered/Resolved]

NARRATIVE: CASE EVENT DATE: 20240203
